FAERS Safety Report 20517784 (Version 4)
Quarter: 2022Q2

REPORT INFORMATION
  Report Type: Report from Study
  Country: CN (occurrence: None)
  Receive Date: 20220225
  Receipt Date: 20220627
  Transmission Date: 20220721
  Serious: Yes (Hospitalization)
  Sender: FDA-Public Use
  Company Number: CN-ROCHE-3030261

PATIENT
  Age: 49 Year
  Sex: Female
  Weight: 48 kg

DRUGS (18)
  1. GLOFITAMAB [Suspect]
     Active Substance: GLOFITAMAB
     Indication: Diffuse large B-cell lymphoma
     Dosage: ON 27-JAN-2022, SHE RECEIVED MOST RECENT DOSE PRIOR TO AE AND SAE AT 10 MG
     Route: 042
     Dates: start: 20220120
  2. OBINUTUZUMAB [Suspect]
     Active Substance: OBINUTUZUMAB
     Indication: Diffuse large B-cell lymphoma
     Dosage: ON 13/JAN/2022, SHE RECEIVED MOST RECENT DOSE PRIOR TO AE AND SAE AT 1000 MG
     Route: 042
     Dates: start: 20220113
  3. GEMCITABINE [Suspect]
     Active Substance: GEMCITABINE
     Indication: Diffuse large B-cell lymphoma
     Dosage: ON 14/JAN/2022, SHE RECEIVED MOST RECENT DOSE PRIOR TO AE AND SAE AT 1382 MG
     Route: 042
     Dates: start: 20220114
  4. OXALIPLATIN [Suspect]
     Active Substance: OXALIPLATIN
     Indication: Diffuse large B-cell lymphoma
     Dosage: ON 14/JAN/2022, SHE RECEIVED MOST RECENT DOSE PRIOR TO AE AND SAE AT 138 MG.
     Route: 042
     Dates: start: 20220114
  5. SANLITONG [Concomitant]
     Dosage: 2 TABLET
     Route: 048
     Dates: start: 20220113, end: 20220113
  6. SANLITONG [Concomitant]
     Dosage: 2 TABLET
     Route: 048
     Dates: start: 20220120, end: 20220120
  7. DEXAMETHASONE SODIUM PHOSPHATE [Concomitant]
     Active Substance: DEXAMETHASONE SODIUM PHOSPHATE
     Route: 042
     Dates: start: 20220113, end: 20220113
  8. DEXAMETHASONE SODIUM PHOSPHATE [Concomitant]
     Active Substance: DEXAMETHASONE SODIUM PHOSPHATE
     Route: 042
     Dates: start: 20220114, end: 20220114
  9. DEXAMETHASONE SODIUM PHOSPHATE [Concomitant]
     Active Substance: DEXAMETHASONE SODIUM PHOSPHATE
     Route: 048
     Dates: start: 20220120, end: 20220120
  10. DEXAMETHASONE SODIUM PHOSPHATE [Concomitant]
     Active Substance: DEXAMETHASONE SODIUM PHOSPHATE
     Route: 048
     Dates: start: 20220127, end: 20220127
  11. CHLORPHENIRAMINE MALEATE [Concomitant]
     Active Substance: CHLORPHENIRAMINE MALEATE
     Dosage: 2 TABLET
     Route: 048
     Dates: start: 20220113, end: 20220113
  12. CHLORPHENIRAMINE MALEATE [Concomitant]
     Active Substance: CHLORPHENIRAMINE MALEATE
     Dosage: 2 TABLET
     Route: 048
     Dates: start: 20220120, end: 20220120
  13. CHLORPHENIRAMINE MALEATE [Concomitant]
     Active Substance: CHLORPHENIRAMINE MALEATE
     Dosage: 2 TABLET
     Route: 048
     Dates: start: 20220127, end: 20220127
  14. PALONOSETRON HYDROCHLORIDE [Concomitant]
     Active Substance: PALONOSETRON HYDROCHLORIDE
     Route: 042
     Dates: start: 20220114, end: 20220114
  15. PANTOPRAZOLE SODIUM [Concomitant]
     Active Substance: PANTOPRAZOLE SODIUM
     Route: 042
     Dates: start: 20220114, end: 20220114
  16. SANLITONG [Concomitant]
     Dosage: 2 TABLET
     Route: 048
     Dates: start: 20220113, end: 20220113
  17. SANLITONG [Concomitant]
     Dosage: 2 TABLET
     Route: 048
     Dates: start: 20220120, end: 20220120
  18. SANLITONG [Concomitant]
     Dosage: 2 TABLET
     Route: 048
     Dates: start: 20220127, end: 20220127

REACTIONS (1)
  - Pancreatitis [Recovered/Resolved]

NARRATIVE: CASE EVENT DATE: 20220128
